FAERS Safety Report 5064605-X (Version None)
Quarter: 2006Q3

REPORT INFORMATION
  Report Type: 
  Country: None (occurrence: None)
  Receive Date: 20060725
  Receipt Date: 20060710
  Transmission Date: 20061208
  Serious: Yes (Other)
  Sender: FDA-Public Use
  Company Number: 2006S1006560

PATIENT
  Sex: Female

DRUGS (1)
  1. EXTENDED RELEASE SODIUM CAPSULES, USP (100 MG) [Suspect]
     Indication: CONVULSION

REACTIONS (5)
  - ABORTION SPONTANEOUS [None]
  - ANTICONVULSANT DRUG LEVEL BELOW THERAPEUTIC [None]
  - CONVULSION [None]
  - DRUG EXPOSURE DURING PREGNANCY [None]
  - THERAPEUTIC RESPONSE UNEXPECTED WITH DRUG SUBSTITUTION [None]
